FAERS Safety Report 18079101 (Version 2)
Quarter: 2020Q3

REPORT INFORMATION
  Report Type: Spontaneous
  Country: US (occurrence: US)
  Receive Date: 20200728
  Receipt Date: 20200805
  Transmission Date: 20201103
  Serious: No
  Sender: FDA-Public Use
  Company Number: US-PFIZER INC-2020285968

PATIENT
  Sex: Male

DRUGS (1)
  1. BOSULIF [Suspect]
     Active Substance: BOSUTINIB MONOHYDRATE
     Dosage: UNK
     Dates: start: 2019

REACTIONS (6)
  - Neck pain [Unknown]
  - Tinnitus [Unknown]
  - Jaw disorder [Unknown]
  - Condition aggravated [Unknown]
  - Pain in jaw [Unknown]
  - Ear pain [Unknown]
